FAERS Safety Report 14197113 (Version 1)
Quarter: 2017Q4

REPORT INFORMATION
  Report Type: Report from Study
  Country: TR (occurrence: TR)
  Receive Date: 20171116
  Receipt Date: 20171116
  Transmission Date: 20180321
  Serious: Yes (Death, Other)
  Sender: FDA-Public Use
  Company Number: TR-ACTELION-A-US2017-162699

PATIENT
  Age: 64 Year
  Sex: Female

DRUGS (1)
  1. VENTAVIS [Suspect]
     Active Substance: ILOPROST
     Indication: PULMONARY ARTERIAL HYPERTENSION
     Dosage: UNK, 9X/DAILY
     Route: 055
     Dates: start: 20161220

REACTIONS (2)
  - Myocardial infarction [Fatal]
  - Syncope [Unknown]

NARRATIVE: CASE EVENT DATE: 20171026
